FAERS Safety Report 24953292 (Version 1)
Quarter: 2025Q1

REPORT INFORMATION
  Report Type: Spontaneous
  Country: DK (occurrence: DK)
  Receive Date: 20250211
  Receipt Date: 20250211
  Transmission Date: 20250409
  Serious: Yes (Other)
  Sender: Haleon PLC
  Company Number: DK-KENVUE-20241000415

PATIENT

DRUGS (1)
  1. NICORETTE [Suspect]
     Active Substance: NICOTINE
     Indication: Product used for unknown indication
     Route: 065

REACTIONS (1)
  - Drug dependence [Not Recovered/Not Resolved]
